FAERS Safety Report 5597696-8 (Version None)
Quarter: 2008Q1

REPORT INFORMATION
  Report Type: 
  Country: None (occurrence: None)
  Receive Date: 20080121
  Receipt Date: 20080111
  Transmission Date: 20080703
  Serious: Yes (Hospitalization)
  Sender: FDA-Public Use
  Company Number: JP-ELI_LILLY_AND_COMPANY-JP200710004378

PATIENT
  Sex: Female

DRUGS (5)
  1. HUMALOG [Suspect]
     Dosage: 4 U, EACH MORNING
     Route: 058
     Dates: start: 20050101
  2. HUMALOG [Suspect]
     Dosage: 6 U, DAILY (1/D)
     Route: 058
     Dates: start: 20050101
  3. HUMALOG [Suspect]
     Dosage: UNK, UNK
     Route: 058
     Dates: start: 20070101
  4. HUMALOG MIX 75/25 [Suspect]
     Dosage: 16 U, EACH EVENING
     Route: 058
     Dates: start: 20050101
  5. HUMALOG MIX 75/25 [Suspect]
     Dosage: UNK, UNK
     Route: 058
     Dates: start: 20070101

REACTIONS (10)
  - BLOOD ALBUMIN DECREASED [None]
  - DIABETES MELLITUS INADEQUATE CONTROL [None]
  - EYE DISORDER [None]
  - GALLBLADDER POLYP [None]
  - GLYCOSYLATED HAEMOGLOBIN INCREASED [None]
  - HYPOGLYCAEMIA [None]
  - INJECTION SITE CALCIFICATION [None]
  - INJECTION SITE INDURATION [None]
  - INSOMNIA [None]
  - PRURITUS [None]
